FAERS Safety Report 5581954-7 (Version None)
Quarter: 2008Q1

REPORT INFORMATION
  Report Type: 
  Country: None (occurrence: None)
  Receive Date: 20080104
  Receipt Date: 20071226
  Transmission Date: 20080703
  Serious: Yes (Other)
  Sender: FDA-Public Use
  Company Number: B0500022A

PATIENT
  Age: 45 Year
  Sex: Male
  Weight: 74 kg

DRUGS (3)
  1. RANITIDINE HCL [Suspect]
     Dosage: 300MG PER DAY
     Route: 048
     Dates: start: 19900101
  2. CO-APROVEL [Concomitant]
     Dosage: 300MG PER DAY
     Route: 048
     Dates: start: 20050901
  3. INIPOMP [Concomitant]
     Dosage: 40MG PER DAY
     Route: 048
     Dates: start: 20051101

REACTIONS (3)
  - INFERTILITY [None]
  - INFERTILITY MALE [None]
  - SPERMATOZOA ABNORMAL [None]
